FAERS Safety Report 8521998-6 (Version None)
Quarter: 2012Q3

REPORT INFORMATION
  Report Type: 
  Country: None (occurrence: None)
  Receive Date: 20120719
  Receipt Date: 20120709
  Transmission Date: 20120928
  Serious: Yes (Other)
  Sender: FDA-Public Use
  Company Number: JP-VERTEX PHARMACEUTICALS INC.-AE-2012-008896

PATIENT
  Age: 49 Year
  Sex: Male

DRUGS (14)
  1. PEGINTERFERON ALFA-2B [Concomitant]
     Indication: HEPATITIS C
     Route: 058
     Dates: end: 20120419
  2. PEGINTERFERON ALFA-2B [Concomitant]
     Route: 058
     Dates: start: 20120426
  3. VITAMIN B12 [Concomitant]
     Route: 048
     Dates: start: 20120419
  4. PEGINTERFERON ALFA-2B [Concomitant]
     Route: 058
     Dates: start: 20120419
  5. RIBAVIRIN [Concomitant]
     Route: 048
     Dates: end: 20120606
  6. PEGINTERFERON ALFA-2B [Concomitant]
     Route: 058
     Dates: end: 20120531
  7. MYONAL [Concomitant]
     Route: 048
     Dates: start: 20120510
  8. TELAVIC (TELAPREVIR) [Suspect]
     Indication: HEPATITIS C
     Route: 048
     Dates: start: 20120412, end: 20120606
  9. RIBAVIRIN [Concomitant]
     Route: 048
  10. PEGINTERFERON ALFA-2B [Concomitant]
     Route: 058
     Dates: start: 20120621
  11. TELAVIC (TELAPREVIR) [Suspect]
     Route: 048
     Dates: start: 20120621, end: 20120704
  12. LAC-B [Concomitant]
     Route: 048
     Dates: start: 20120426
  13. RIBAVIRIN [Concomitant]
     Route: 048
     Dates: start: 20120621
  14. MS ONSHIPPU [Concomitant]
     Route: 061
     Dates: start: 20120502

REACTIONS (1)
  - NEUTROPHIL COUNT DECREASED [None]
